FAERS Safety Report 7412010-0 (Version None)
Quarter: 2011Q2

REPORT INFORMATION
  Report Type: 
  Country: None (occurrence: None)
  Receive Date: 20110413
  Receipt Date: 20110404
  Transmission Date: 20111010
  Serious: Yes (Hospitalization)
  Sender: FDA-Public Use
  Company Number: FR-EISAI INC-E3810-04593-SPO-FR

PATIENT
  Sex: Male

DRUGS (11)
  1. AMLODIPINE BESYLATE [Concomitant]
  2. STILNOX [Concomitant]
  3. LEVOTHYROX [Concomitant]
  4. PREVISCAN [Concomitant]
  5. KALEORID [Concomitant]
  6. PLAVIX [Concomitant]
  7. CARDENSIEL [Concomitant]
  8. LASIX [Concomitant]
  9. COVERSYL [Suspect]
     Route: 048
     Dates: start: 20110101, end: 20110223
  10. TAHOR [Concomitant]
  11. PARIET (RABEPRAZOLE) [Suspect]
     Route: 048
     Dates: start: 20110101, end: 20110223

REACTIONS (1)
  - NEUTROPENIA [None]
